FAERS Safety Report 5932710-9 (Version None)
Quarter: 2008Q4

REPORT INFORMATION
  Report Type: 
  Country: None (occurrence: None)
  Receive Date: 20081027
  Receipt Date: 20081027
  Transmission Date: 20090506
  Serious: Yes (Other)
  Sender: FDA-Public Use
  Company Number: None

PATIENT
  Sex: Male
  Weight: 65.7716 kg

DRUGS (1)
  1. SINGULAIR [Suspect]
     Indication: ASTHMA EXERCISE INDUCED
     Dosage: 1 - 10 MG PILL DAILY PO
     Route: 048
     Dates: start: 20080702, end: 20080918

REACTIONS (4)
  - DEPRESSION [None]
  - IRRITABILITY [None]
  - MIGRAINE [None]
  - SUICIDAL IDEATION [None]
